FAERS Safety Report 4596377-7 (Version None)
Quarter: 2005Q1

REPORT INFORMATION
  Report Type: 
  Country: None (occurrence: None)
  Receive Date: 20050228
  Receipt Date: 20050104
  Transmission Date: 20050727
  Serious: Yes (Life-Threatening)
  Sender: FDA-Public Use
  Company Number: 2004096997

PATIENT
  Age: 58 Year
  Sex: Female
  Weight: 85 kg

DRUGS (4)
  1. BEXTRA [Suspect]
     Indication: PAIN
     Dosage: 10 MG (10 MG, 1 IN 1 D): ORAL
     Route: 048
     Dates: start: 20040901, end: 20041001
  2. SERETIDE MITE (FLUTICASONE PROPIONATE, SALMETEROL XINAFOATE) [Concomitant]
  3. BUDESONIDE [Concomitant]
  4. VERAPAMIL HYDROCHLORIDE [Concomitant]

REACTIONS (1)
  - EXANTHEM [None]
